FAERS Safety Report 15310399 (Version 1)
Quarter: 2018Q3

REPORT INFORMATION
  Report Type: Spontaneous
  Country: US (occurrence: US)
  Receive Date: 20180813
  Receipt Date: 20180813
  Transmission Date: 20181010
  Serious: Yes (Other)
  Sender: FDA-Public Use
  Company Number: None

PATIENT
  Age: 83 Year
  Sex: Male
  Weight: 92.25 kg

DRUGS (10)
  1. VITAMIN D3 [Concomitant]
     Active Substance: CHOLECALCIFEROL
  2. XARELTO [Concomitant]
     Active Substance: RIVAROXABAN
  3. FISH OIL [Concomitant]
     Active Substance: FISH OIL
  4. ATORVASTATIN [Concomitant]
     Active Substance: ATORVASTATIN
  5. ZOMETA [Concomitant]
     Active Substance: ZOLEDRONIC ACID
  6. PACLITAXEL. [Concomitant]
     Active Substance: PACLITAXEL
  7. CALTRATE [Concomitant]
     Active Substance: CALCIUM CARBONATE
  8. METOPROLOL. [Concomitant]
     Active Substance: METOPROLOL
  9. CAL MAG [Concomitant]
  10. IBRANCE [Suspect]
     Active Substance: PALBOCICLIB
     Indication: BREAST CANCER
     Route: 048
     Dates: start: 20180621, end: 20180801

REACTIONS (1)
  - Viral infection [None]

NARRATIVE: CASE EVENT DATE: 20180801
